FAERS Safety Report 9097913 (Version 2)
Quarter: 2013Q1

REPORT INFORMATION
  Report Type: Spontaneous
  Country: SG (occurrence: SG)
  Receive Date: 20130212
  Receipt Date: 20130226
  Transmission Date: 20140127
  Serious: Yes (Hospitalization, Other)
  Sender: FDA-Public Use
  Company Number: SG-BRISTOL-MYERS SQUIBB COMPANY-17365545

PATIENT
  Age: 56 Year
  Sex: Female

DRUGS (6)
  1. METFORMIN HCL [Suspect]
     Indication: DIABETES MELLITUS
     Dosage: 08FEB2010-20APR2010:1500MG
     Route: 048
     Dates: start: 20100420
  2. ENALAPRIL [Concomitant]
     Route: 048
     Dates: start: 20090610
  3. NIFEDIPINE [Concomitant]
     Route: 048
     Dates: start: 20090824
  4. SIMVASTATIN [Concomitant]
     Route: 048
     Dates: start: 20080805
  5. DOMPERIDONE [Concomitant]
     Route: 048
     Dates: start: 20101109
  6. KETOPROFEN [Concomitant]
     Dosage: 2.5% GEL
     Route: 061
     Dates: start: 20101005

REACTIONS (1)
  - Retinal detachment [Recovered/Resolved]
